FAERS Safety Report 16345050 (Version 2)
Quarter: 2019Q3

REPORT INFORMATION
  Report Type: Report from Study
  Country: DE (occurrence: DE)
  Receive Date: 20190523
  Receipt Date: 20190827
  Transmission Date: 20191004
  Serious: Yes (Hospitalization, Other)
  Sender: FDA-Public Use
  Company Number: DE-SA-2017SA076485

PATIENT
  Age: 54 Year
  Sex: Female

DRUGS (7)
  1. METHYLPREDNISOLONE. [Concomitant]
     Active Substance: METHYLPREDNISOLONE
     Dosage: 1 G,UNK
     Route: 042
     Dates: start: 201704
  2. FENISTIL [Concomitant]
     Active Substance: DIMETHINDENE
     Dosage: 8 ML,UNK
     Route: 065
     Dates: start: 201704
  3. PARACETAMOL [Concomitant]
     Active Substance: ACETAMINOPHEN
     Dosage: 1000 MG,UNK
     Route: 042
     Dates: start: 201704
  4. RANITIDINE. [Concomitant]
     Active Substance: RANITIDINE
     Dosage: 8 ML,UNK
     Route: 065
     Dates: start: 201704
  5. ALEMTUZUMAB [Suspect]
     Active Substance: ALEMTUZUMAB
     Dosage: 12 MG, QD
     Route: 041
     Dates: start: 20160309, end: 20160314
  6. ALEMTUZUMAB [Suspect]
     Active Substance: ALEMTUZUMAB
     Indication: MULTIPLE SCLEROSIS
     Dosage: 12 MG, QD
     Route: 041
     Dates: start: 20170411, end: 20170413
  7. ACICLOVIR [Concomitant]
     Active Substance: ACYCLOVIR
     Dosage: 200 MG,BID
     Route: 065
     Dates: start: 201704, end: 20170513

REACTIONS (32)
  - C-reactive protein increased [Recovered/Resolved]
  - Infection [Recovered/Resolved]
  - Chest discomfort [Recovered/Resolved]
  - Toothache [Unknown]
  - Metrorrhagia [Recovering/Resolving]
  - Urticaria [Recovered/Resolved]
  - Oral fungal infection [Recovering/Resolving]
  - Fatigue [Not Recovered/Not Resolved]
  - Pain [Unknown]
  - Fatigue [Unknown]
  - Arthralgia [Not Recovered/Not Resolved]
  - Inflammatory marker decreased [Recovered/Resolved]
  - Cystitis escherichia [Recovered/Resolved]
  - Hepatic enzyme increased [Recovered/Resolved]
  - Rash [Recovered/Resolved]
  - Bronchitis [Recovered/Resolved]
  - Diarrhoea [Recovered/Resolved]
  - General physical health deterioration [Unknown]
  - Vulvovaginal mycotic infection [Recovering/Resolving]
  - Alopecia [Not Recovered/Not Resolved]
  - Muscular weakness [Recovered/Resolved]
  - Pyrexia [Recovered/Resolved]
  - Haemorrhagic diathesis [Unknown]
  - Multiple sclerosis relapse [Unknown]
  - Osteoarthritis [Unknown]
  - Stress [Not Recovered/Not Resolved]
  - Dermatitis allergic [Recovered/Resolved]
  - Malaise [Recovered/Resolved]
  - Asthenia [Not Recovered/Not Resolved]
  - Cardiovascular disorder [Not Recovered/Not Resolved]
  - Alopecia [Recovered/Resolved]
  - Dry skin [Unknown]

NARRATIVE: CASE EVENT DATE: 2017
